FAERS Safety Report 19545278 (Version 3)
Quarter: 2021Q3

REPORT INFORMATION
  Report Type: Report from Study
  Country: US (occurrence: US)
  Receive Date: 20210714
  Receipt Date: 20210830
  Transmission Date: 20211014
  Serious: No
  Sender: FDA-Public Use
  Company Number: NVSC2021US149455

PATIENT
  Sex: Female

DRUGS (1)
  1. COSENTYX [Suspect]
     Active Substance: SECUKINUMAB
     Indication: PSORIASIS
     Dosage: 300 MG, QMO
     Route: 058

REACTIONS (4)
  - Fatigue [Unknown]
  - Pain [Unknown]
  - Vomiting [Unknown]
  - Malaise [Unknown]
